FAERS Safety Report 8840944 (Version 1)
Quarter: 2012Q4

REPORT INFORMATION
  Report Type: 
  Country: ES (occurrence: ES)
  Receive Date: 20121015
  Receipt Date: 20121015
  Transmission Date: 20130627
  Serious: Yes (Hospitalization, Other)
  Sender: FDA-Public Use
  Company Number: ES-ELI_LILLY_AND_COMPANY-ES201210003475

PATIENT
  Age: 65 Year
  Sex: Male

DRUGS (5)
  1. GEMCITABINE HYDROCHLORIDE [Suspect]
     Indication: MYCOSIS FUNGOIDES
  2. PSORALEN [Concomitant]
  3. METHOTREXATE [Concomitant]
     Route: 048
  4. BEXAROTENE [Concomitant]
  5. PREDNISONE [Concomitant]
     Dosage: 20 mg, qd
     Route: 048

REACTIONS (6)
  - Interstitial lung disease [Recovering/Resolving]
  - Pneumonia [Recovering/Resolving]
  - Septic shock [Recovering/Resolving]
  - Respiratory failure [Recovering/Resolving]
  - Pulmonary artery thrombosis [Recovering/Resolving]
  - Off label use [Recovered/Resolved]
